FAERS Safety Report 21027079 (Version 2)
Quarter: 2022Q3

REPORT INFORMATION
  Report Type: Report from Study
  Country: US (occurrence: US)
  Receive Date: 20220630
  Receipt Date: 20220824
  Transmission Date: 20221027
  Serious: Yes (Death)
  Sender: FDA-Public Use
  Company Number: US-UCBSA-2022035750

PATIENT
  Sex: Male
  Weight: 99.7 kg

DRUGS (1)
  1. ROTIGOTINE [Suspect]
     Active Substance: ROTIGOTINE
     Indication: Parkinson^s disease
     Dosage: 8MG 1 PATCH DAILY
     Route: 062
     Dates: end: 20220529

REACTIONS (2)
  - Parkinson^s disease [Fatal]
  - Aspiration [Fatal]
